FAERS Safety Report 6274191-4 (Version None)
Quarter: 2009Q3

REPORT INFORMATION
  Report Type: 
  Country: None (occurrence: None)
  Receive Date: 20090720
  Receipt Date: 20090709
  Transmission Date: 20100115
  Serious: Yes (Hospitalization, Other)
  Sender: FDA-Public Use
  Company Number: GB-ASTRAZENECA-2009GB00711

PATIENT
  Age: 62 Year
  Sex: Male

DRUGS (9)
  1. SEROQUEL [Suspect]
     Indication: ANXIETY
     Route: 048
     Dates: start: 20090106, end: 20090106
  2. SEROQUEL [Suspect]
     Dosage: 50 MG THREE TIMES  A DAY
     Route: 048
     Dates: start: 20081218
  3. METAZAPINE [Concomitant]
  4. OLANZAPINE [Concomitant]
     Dosage: 10MG
  5. FENESTERIDE [Concomitant]
     Dosage: 10MG
  6. LOSARTAN POTASSIUM [Concomitant]
  7. ATORVISTATIN [Concomitant]
  8. ASPIRIN [Concomitant]
  9. LANSOPRAZOLE [Concomitant]

REACTIONS (3)
  - ANGINA PECTORIS [None]
  - MYOCARDIAL INFARCTION [None]
  - OVERDOSE [None]
